FAERS Safety Report 13608739 (Version 11)
Quarter: 2021Q2

REPORT INFORMATION
  Report Type: Spontaneous
  Country: US (occurrence: US)
  Receive Date: 20170602
  Receipt Date: 20210415
  Transmission Date: 20210716
  Serious: Yes (Hospitalization, Other)
  Sender: FDA-Public Use
  Company Number: US-PFIZER INC-2017240409

PATIENT
  Age: 60 Year
  Sex: Female
  Weight: 91 kg

DRUGS (2)
  1. XELJANZ XR [Suspect]
     Active Substance: TOFACITINIB CITRATE
     Indication: OSTEOARTHRITIS
  2. XELJANZ XR [Suspect]
     Active Substance: TOFACITINIB CITRATE
     Indication: RHEUMATOID ARTHRITIS
     Dosage: 11 MG, 1X/DAY
     Route: 048
     Dates: start: 2017

REACTIONS (24)
  - Pneumonia [Recovering/Resolving]
  - Diabetes mellitus [Unknown]
  - Peripheral swelling [Unknown]
  - Cough [Unknown]
  - Chills [Recovered/Resolved]
  - Escherichia bacteraemia [Unknown]
  - Feeling abnormal [Unknown]
  - Vision blurred [Unknown]
  - Confusional state [Unknown]
  - Throat irritation [Unknown]
  - Urinary tract infection [Unknown]
  - Dyspnoea [Unknown]
  - Body temperature increased [Unknown]
  - Chronic obstructive pulmonary disease [Unknown]
  - Feeling abnormal [Unknown]
  - Fall [Unknown]
  - Chest discomfort [Unknown]
  - Cataract [Not Recovered/Not Resolved]
  - Lower respiratory tract infection [Unknown]
  - Speech disorder [Unknown]
  - Coma [Unknown]
  - Pain [Unknown]
  - Productive cough [Unknown]
  - Asthenia [Unknown]

NARRATIVE: CASE EVENT DATE: 2017
